FAERS Safety Report 12843499 (Version 1)
Quarter: 2016Q4

REPORT INFORMATION
  Report Type: Spontaneous
  Country: US (occurrence: US)
  Receive Date: 20161013
  Receipt Date: 20161013
  Transmission Date: 20170207
  Serious: Yes (Other)
  Sender: FDA-Public Use
  Company Number: None

PATIENT
  Age: 66 Year
  Sex: Female
  Weight: 69.01 kg

DRUGS (3)
  1. NORTRIPTYLINE HCL [Suspect]
     Active Substance: NORTRIPTYLINE HYDROCHLORIDE
     Indication: FIBROMYALGIA
     Route: 048
     Dates: start: 20160816, end: 20160820
  2. ASPIRIN. [Concomitant]
     Active Substance: ASPIRIN
  3. GENERIC XANAX [Concomitant]

REACTIONS (6)
  - Overdose [None]
  - Feeling jittery [None]
  - Bruxism [None]
  - Headache [None]
  - Caffeine consumption [None]
  - Product substitution issue [None]

NARRATIVE: CASE EVENT DATE: 20160820
